FAERS Safety Report 6347335-3 (Version None)
Quarter: 2009Q3

REPORT INFORMATION
  Report Type: 
  Country: None (occurrence: None)
  Receive Date: 20090908
  Receipt Date: 20090908
  Transmission Date: 20100115
  Serious: Yes (Hospitalization)
  Sender: FDA-Public Use
  Company Number: None

PATIENT
  Age: 72 Year
  Sex: Male
  Weight: 77.3 kg

DRUGS (3)
  1. SORAFENIB [Suspect]
     Dosage: 200MG DAILY BID PO
     Route: 048
     Dates: start: 20090409
  2. OXALIPLATIN [Concomitant]
  3. CAPECITABINE [Concomitant]

REACTIONS (6)
  - ACCIDENTAL OVERDOSE [None]
  - ANAEMIA [None]
  - ERYTHEMA MULTIFORME [None]
  - HYPOALBUMINAEMIA [None]
  - HYPOCALCAEMIA [None]
  - HYPOPHOSPHATAEMIA [None]
